FAERS Safety Report 9473871 (Version 1)
Quarter: 2013Q3

REPORT INFORMATION
  Report Type: Spontaneous
  Country: US (occurrence: US)
  Receive Date: 20130823
  Receipt Date: 20130823
  Transmission Date: 20140515
  Serious: No
  Sender: FDA-Public Use
  Company Number: US-BRISTOL-MYERS SQUIBB COMPANY-17080151

PATIENT
  Age: 67 Year
  Sex: Female

DRUGS (13)
  1. SPRYCEL [Suspect]
     Indication: CHRONIC MYELOID LEUKAEMIA
  2. IMITREX [Suspect]
  3. LAMICTAL [Concomitant]
  4. ESTRACE [Concomitant]
  5. PRAVASTATIN SODIUM [Concomitant]
  6. ALBUTEROL [Concomitant]
  7. PRILOSEC [Concomitant]
  8. LORAZEPAM [Concomitant]
  9. ULTRAM [Concomitant]
  10. EYE DROPS [Concomitant]
  11. CELEBREX [Concomitant]
  12. CLARITIN [Concomitant]
  13. CYTOTEC [Concomitant]

REACTIONS (3)
  - Burning sensation [Unknown]
  - Paraesthesia [Unknown]
  - Weight decreased [Unknown]
